FAERS Safety Report 24249707 (Version 1)
Quarter: 2024Q3

REPORT INFORMATION
  Report Type: Spontaneous
  Country: IN (occurrence: IN)
  Receive Date: 20240826
  Receipt Date: 20240826
  Transmission Date: 20241017
  Serious: Yes (Death)
  Sender: ELI LILLY AND CO
  Company Number: IN-ELI_LILLY_AND_COMPANY-IN202408015214

PATIENT
  Age: 60 Year
  Sex: Male

DRUGS (1)
  1. CYRAMZA [Suspect]
     Active Substance: RAMUCIRUMAB
     Indication: Product used for unknown indication
     Dosage: 500 MG, OTHER (ONCE IN 14 DAYS)
     Route: 065

REACTIONS (1)
  - Death [Fatal]
